FAERS Safety Report 21488137 (Version 1)
Quarter: 2022Q4

REPORT INFORMATION
  Report Type: Spontaneous
  Country: GB (occurrence: GB)
  Receive Date: 20221020
  Receipt Date: 20221020
  Transmission Date: 20230113
  Serious: Yes (Other)
  Sender: FDA-Public Use
  Company Number: None

PATIENT
  Age: 60 Year
  Sex: Female

DRUGS (1)
  1. MIRTAZAPINE [Suspect]
     Active Substance: MIRTAZAPINE
     Indication: Depression suicidal
     Dosage: 45MG ONCE A DAY AT NIGHT
     Dates: start: 20210901, end: 20220903

REACTIONS (1)
  - Tongue abscess [Recovered/Resolved with Sequelae]

NARRATIVE: CASE EVENT DATE: 20211001
